FAERS Safety Report 8330938-4 (Version None)
Quarter: 2012Q2

REPORT INFORMATION
  Report Type: 
  Country: None (occurrence: None)
  Receive Date: 20120502
  Receipt Date: 20120403
  Transmission Date: 20120825
  Serious: No
  Sender: FDA-Public Use
  Company Number: US-AMGEN-USASP2011063608

PATIENT
  Age: 55 Year
  Sex: Female
  Weight: 77.098 kg

DRUGS (1)
  1. ENBREL [Suspect]
     Indication: RHEUMATOID ARTHRITIS
     Dosage: 40 MG, QWK
     Route: 058
     Dates: start: 20110111

REACTIONS (3)
  - PAIN OF SKIN [None]
  - RASH [None]
  - SKIN DISCOLOURATION [None]
